FAERS Safety Report 10423801 (Version 4)
Quarter: 2015Q3

REPORT INFORMATION
  Report Type: Spontaneous
  Country: US (occurrence: US)
  Receive Date: 20140902
  Receipt Date: 20150924
  Transmission Date: 20151125
  Serious: Yes (Hospitalization, Other)
  Sender: FDA-Public Use
  Company Number: US-MERCK-1409USA000488

PATIENT
  Sex: Male
  Weight: 91.16 kg

DRUGS (2)
  1. JANUVIA [Suspect]
     Active Substance: SITAGLIPTIN PHOSPHATE
     Indication: TYPE 2 DIABETES MELLITUS
     Dosage: 100 MG, QD
     Route: 048
     Dates: start: 20070112, end: 200805
  2. BYETTA [Suspect]
     Active Substance: EXENATIDE
     Indication: TYPE 2 DIABETES MELLITUS
     Dosage: 5 MICROGRAM, UNK
     Route: 058
     Dates: start: 200902, end: 200903

REACTIONS (45)
  - Cholecystitis chronic [Recovered/Resolved]
  - Intestinal adhesion lysis [Unknown]
  - Radiotherapy [Unknown]
  - Hiatus hernia [Unknown]
  - Osteoarthritis [Unknown]
  - Hernia hiatus repair [Unknown]
  - Gastrointestinal haemorrhage [Recovered/Resolved]
  - Anaemia [Unknown]
  - Pancreatitis chronic [Not Recovered/Not Resolved]
  - Hernia hiatus repair [Unknown]
  - Diverticulum [Unknown]
  - Hepatic cyst [Unknown]
  - Lung disorder [Unknown]
  - Hyperhidrosis [Unknown]
  - Pancreatic carcinoma metastatic [Unknown]
  - Gastric bypass [Unknown]
  - Renal disorder [Unknown]
  - Insulin-requiring type 2 diabetes mellitus [Unknown]
  - Abdominal adhesions [Unknown]
  - Penile prosthesis insertion [Unknown]
  - Constipation [Unknown]
  - Pancreaticoduodenectomy [Unknown]
  - Insomnia [Unknown]
  - Cholecystectomy [Unknown]
  - Hypertension [Unknown]
  - Renal cyst [Unknown]
  - Hypercholesterolaemia [Unknown]
  - Spinal osteoarthritis [Unknown]
  - Metastases to lymph nodes [Unknown]
  - Melaena [Unknown]
  - Mesenteric vein thrombosis [Unknown]
  - Abdominal pain [Unknown]
  - Gastrooesophageal reflux disease [Unknown]
  - Arteriosclerosis [Unknown]
  - Large intestine polyp [Unknown]
  - Osteopenia [Unknown]
  - Diverticulum intestinal [Unknown]
  - Anaemia [Unknown]
  - Splenic vein thrombosis [Unknown]
  - Cholelithiasis [Recovered/Resolved]
  - Intestinal adhesion lysis [Unknown]
  - Oesophagogastric fundoplasty [Unknown]
  - Portal vein thrombosis [Unknown]
  - Drug ineffective [Unknown]
  - Pulmonary mass [Unknown]

NARRATIVE: CASE EVENT DATE: 201012
